FAERS Safety Report 11076090 (Version 2)
Quarter: 2015Q2

REPORT INFORMATION
  Report Type: Spontaneous
  Country: US (occurrence: US)
  Receive Date: 20150429
  Receipt Date: 20150511
  Transmission Date: 20150821
  Serious: Yes (Other)
  Sender: FDA-Public Use
  Company Number: US-LPDUSPRD-20150244

PATIENT
  Age: 6 Year
  Sex: Female

DRUGS (2)
  1. DEXAMETHASONE SODIUM PHOSPHATE INJECTION, USP (4901-25) 4 MG/ML [Suspect]
     Active Substance: DEXAMETHASONE SODIUM PHOSPHATE
     Dosage: 10 MG/M2
     Route: 065
  2. VANDETANIB. [Suspect]
     Active Substance: VANDETANIB
     Dosage: 50 MG/M2/DAY

REACTIONS (3)
  - Osteonecrosis [Unknown]
  - Drug interaction [None]
  - Bone marrow oedema [Not Recovered/Not Resolved]
